FAERS Safety Report 13580495 (Version 1)
Quarter: 2017Q2

REPORT INFORMATION
  Report Type: Spontaneous
  Country: IN (occurrence: IN)
  Receive Date: 20170525
  Receipt Date: 20170525
  Transmission Date: 20170830
  Serious: Yes (Death, Other)
  Sender: FDA-Public Use
  Company Number: IN-PFIZER INC-2017052182

PATIENT
  Age: 39 Year
  Sex: Male

DRUGS (5)
  1. SUTENT [Suspect]
     Active Substance: SUNITINIB MALATE
     Indication: METASTATIC RENAL CELL CARCINOMA
     Dosage: 50 MG, 1X/DAY
     Route: 048
     Dates: start: 20170117, end: 201702
  2. CHERI [Concomitant]
     Indication: DIARRHOEA
     Dosage: 2 DF, 2X/DAY
  3. UNIENZYME [Concomitant]
     Indication: DIARRHOEA
     Dosage: 2 DF, 2X/DAY
  4. DOMSTAL [Concomitant]
     Dosage: 10 MG, AS NEEDED (SOS)
     Route: 048
  5. PAN D [Concomitant]
     Dosage: 40 UNK, 1X/DAY (HALF HOUR BEFORE BREAKFAST)

REACTIONS (5)
  - Insomnia [Unknown]
  - Neoplasm progression [Fatal]
  - Diarrhoea [Unknown]
  - Coma [Unknown]
  - Liver tenderness [Unknown]
